FAERS Safety Report 6219754-7 (Version None)
Quarter: 2009Q2

REPORT INFORMATION
  Report Type: 
  Country: None (occurrence: None)
  Receive Date: 20090609
  Receipt Date: 20090526
  Transmission Date: 20091009
  Serious: Yes (Hospitalization, Congenital Anomaly)
  Sender: FDA-Public Use
  Company Number: A0747568A

PATIENT
  Sex: Female
  Weight: 1.4 kg

DRUGS (6)
  1. PAXIL [Suspect]
     Indication: DEPRESSION
     Dosage: 20MG PER DAY
     Dates: start: 20030601, end: 20050101
  2. PAXIL CR [Suspect]
     Indication: DEPRESSION
     Dosage: 25MG TWICE PER DAY
     Dates: start: 20030601, end: 20050122
  3. ZOFRAN [Concomitant]
     Dates: start: 20041201
  4. REGLAN [Concomitant]
     Dates: start: 20041201
  5. FLINTSTONE VITAMINS [Concomitant]
  6. PHENERGAN [Concomitant]
     Dates: start: 20050201

REACTIONS (2)
  - DRUG EXPOSURE DURING PREGNANCY [None]
  - HEART DISEASE CONGENITAL [None]
